FAERS Safety Report 4366865-7 (Version None)
Quarter: 2004Q2

REPORT INFORMATION
  Report Type: 
  Country: None (occurrence: None)
  Receive Date: 20040524
  Receipt Date: 20040511
  Transmission Date: 20050107
  Serious: Yes (Death, Hospitalization)
  Sender: FDA-Public Use
  Company Number: 03P-163-0232836-00

PATIENT
  Age: 71 Year
  Sex: Female
  Weight: 65 kg

DRUGS (5)
  1. VICODIN [Suspect]
     Indication: PAIN
  2. VICODIN [Suspect]
     Indication: PROCEDURAL COMPLICATION
  3. ZOLEDRONATE OR PLACEBO (ZOLEDRONIC ACID) [Suspect]
     Indication: OSTEOPOROSIS POSTMENOPAUSAL
     Dates: start: 20021113
  4. CALCIUM [Concomitant]
  5. ERGOCALCIFEROL [Concomitant]

REACTIONS (35)
  - ABDOMINAL DISTENSION [None]
  - ATHEROSCLEROSIS [None]
  - BRADYCARDIA [None]
  - CHEST WALL ABSCESS [None]
  - COAGULOPATHY [None]
  - COMA [None]
  - CONSTIPATION [None]
  - DISEASE PROGRESSION [None]
  - DIVERTICULUM INTESTINAL [None]
  - FALL [None]
  - GASTROINTESTINAL DISORDER [None]
  - GASTROINTESTINAL ISCHAEMIA [None]
  - HEPATIC FAILURE [None]
  - HYPERKERATOSIS [None]
  - HYPOTENSION [None]
  - INTESTINAL OBSTRUCTION [None]
  - LYMPHADENOPATHY [None]
  - MULTI-ORGAN FAILURE [None]
  - PANCREATITIS [None]
  - PERITONEAL INFECTION [None]
  - PLEURAL EFFUSION [None]
  - PNEUMONIA [None]
  - PNEUMONIA ASPIRATION [None]
  - POST PROCEDURAL COMPLICATION [None]
  - PROCTITIS [None]
  - PULMONARY OEDEMA [None]
  - RECTAL ULCER [None]
  - RENAL FAILURE [None]
  - RESPIRATORY FAILURE [None]
  - RHONCHI [None]
  - SEPTIC SHOCK [None]
  - SINUS TACHYCARDIA [None]
  - SYSTEMIC INFLAMMATORY RESPONSE SYNDROME [None]
  - VOLVULUS OF BOWEL [None]
  - WRIST FRACTURE [None]
